FAERS Safety Report 9074347 (Version 1)
Quarter: 2013Q1

REPORT INFORMATION
  Report Type: Report from Study
  Country: US (occurrence: US)
  Receive Date: 20130129
  Receipt Date: 20130129
  Transmission Date: 20140127
  Serious: No
  Sender: FDA-Public Use
  Company Number: US-ABBOTT-12P-163-0931109-00

PATIENT
  Age: 28 Year
  Sex: Female

DRUGS (4)
  1. HUMIRA 40 MG/0.8 ML PEN [Suspect]
     Indication: CROHN^S DISEASE
     Dates: start: 201202
  2. HUMIRA 40 MG/0.8 ML PEN [Suspect]
     Dates: start: 20120427
  3. SINGULAIR OR CLARITIN [Concomitant]
     Indication: SINUS DISORDER
  4. RANITIDINE [Concomitant]
     Indication: HYPERSENSITIVITY
     Dosage: 20MG DAILY

REACTIONS (8)
  - Dizziness [Recovered/Resolved]
  - Dizziness [Recovered/Resolved]
  - Condition aggravated [Recovered/Resolved]
  - Burning sensation [Recovered/Resolved]
  - Drug ineffective [Not Recovered/Not Resolved]
  - Diarrhoea [Not Recovered/Not Resolved]
  - Abdominal pain upper [Not Recovered/Not Resolved]
  - Paraesthesia [Recovered/Resolved]
